FAERS Safety Report 21333200 (Version 1)
Quarter: 2022Q3

REPORT INFORMATION
  Report Type: Spontaneous
  Country: US (occurrence: US)
  Receive Date: 20220914
  Receipt Date: 20220914
  Transmission Date: 20221027
  Serious: No
  Sender: FDA-Public Use
  Company Number: US-BAYER-2022A128024

PATIENT
  Age: 69 Year
  Sex: Male

DRUGS (4)
  1. CLARITIN-D 24 HOUR [Suspect]
     Active Substance: LORATADINE\PSEUDOEPHEDRINE SULFATE
     Indication: Allergic respiratory symptom
     Dosage: 1 DF
     Route: 048
     Dates: start: 20220912, end: 20220912
  2. FENOFIBRATE [Concomitant]
     Active Substance: FENOFIBRATE
  3. METOPROLOL [Concomitant]
     Active Substance: METOPROLOL
  4. ASPIRIN [Concomitant]
     Active Substance: ASPIRIN

REACTIONS (3)
  - Aggression [Unknown]
  - Confusional state [Unknown]
  - Anger [Unknown]
